FAERS Safety Report 5824034-5 (Version None)
Quarter: 2008Q3

REPORT INFORMATION
  Report Type: 
  Country: None (occurrence: None)
  Receive Date: 20080728
  Receipt Date: 20080724
  Transmission Date: 20090109
  Serious: Yes (Other)
  Sender: FDA-Public Use
  Company Number: GB-BRISTOL-MYERS SQUIBB COMPANY-14277164

PATIENT
  Age: 39 Year
  Sex: Female

DRUGS (4)
  1. SUSTIVA [Suspect]
     Indication: HIV INFECTION
     Route: 048
     Dates: start: 20070514, end: 20080218
  2. VIDEX [Suspect]
     Indication: HIV INFECTION
     Route: 048
     Dates: start: 20070514
  3. KALETRA [Suspect]
     Indication: HIV INFECTION
     Route: 048
     Dates: start: 20070514
  4. VIRAMUNE [Suspect]
     Indication: HIV INFECTION
     Dosage: FROM 03MAR08 200MG GIVEN ONCE DAILY
     Route: 048
     Dates: start: 20080218, end: 20080303

REACTIONS (2)
  - ABORTION SPONTANEOUS [None]
  - PREGNANCY [None]
